FAERS Safety Report 21989480 (Version 1)
Quarter: 2023Q1

REPORT INFORMATION
  Report Type: Report from Study
  Country: RU (occurrence: RU)
  Receive Date: 20230214
  Receipt Date: 20230214
  Transmission Date: 20230418
  Serious: Yes (Other)
  Sender: FDA-Public Use
  Company Number: RU-002147023-NVSC2023RU030809

PATIENT
  Age: 75 Year
  Sex: Female

DRUGS (6)
  1. ALPELISIB [Suspect]
     Active Substance: ALPELISIB
     Indication: Neoplasm malignant
     Dosage: 300 MG, QD
     Route: 048
     Dates: start: 20221230, end: 20230106
  2. ALPELISIB [Suspect]
     Active Substance: ALPELISIB
     Dosage: 300 MG, QD
     Route: 048
     Dates: start: 20230115
  3. METFORMIN [Concomitant]
     Active Substance: METFORMIN HYDROCHLORIDE
     Indication: Product used for unknown indication
     Dosage: UNK
     Route: 065
  4. INSULIN GLARGINE [Concomitant]
     Active Substance: INSULIN GLARGINE
     Indication: Product used for unknown indication
     Dosage: UNK (38 UNITS IN THE MORNING)
     Route: 065
  5. INSULIN GLULISINE [Concomitant]
     Active Substance: INSULIN GLULISINE
     Indication: Product used for unknown indication
     Dosage: UNK (14-16-20 UNITS)
     Route: 065
  6. LEVOTHYROXINE [Concomitant]
     Active Substance: LEVOTHYROXINE
     Indication: Product used for unknown indication
     Dosage: UNK UNK, QD (125/100 MCG)
     Route: 065

REACTIONS (3)
  - Diabetic metabolic decompensation [Unknown]
  - Hyperglycaemia [Unknown]
  - Discontinued product administered [Unknown]

NARRATIVE: CASE EVENT DATE: 20230106
